FAERS Safety Report 20819523 (Version 1)
Quarter: 2022Q2

REPORT INFORMATION
  Report Type: Spontaneous
  Country: US (occurrence: None)
  Receive Date: 20220511
  Receipt Date: 20220511
  Transmission Date: 20220721
  Serious: Yes (Life-Threatening, Other)
  Sender: FDA-Public Use
  Company Number: None

PATIENT
  Age: 44 Year
  Sex: Female
  Weight: 112.95 kg

DRUGS (19)
  1. TAXOL [Suspect]
     Active Substance: PACLITAXEL
     Indication: Endometrial cancer
     Route: 042
  2. TAXOL [Suspect]
     Active Substance: PACLITAXEL
     Indication: Lung neoplasm malignant
  3. PARAPLATIN [Suspect]
     Active Substance: CARBOPLATIN
     Indication: Endometrial cancer
     Route: 042
  4. PARAPLATIN [Suspect]
     Active Substance: CARBOPLATIN
     Indication: Lung neoplasm malignant
  5. METFORMIN [Concomitant]
     Active Substance: METFORMIN HYDROCHLORIDE
  6. LOSARTAN [Concomitant]
     Active Substance: LOSARTAN
  7. FERROUS SULFATE [Concomitant]
     Active Substance: FERROUS SULFATE
  8. GLIPIZIDE [Concomitant]
     Active Substance: GLIPIZIDE
  9. BRIMONIDINE [Concomitant]
     Active Substance: BRIMONIDINE TARTRATE
  10. LATANOPROST [Concomitant]
  11. ALBUTEROL [Concomitant]
     Active Substance: ALBUTEROL
  12. ASPIRIN [Concomitant]
     Active Substance: ASPIRIN
  13. ALCOHOL WIPE [Concomitant]
     Active Substance: ISOPROPYL ALCOHOL
  14. NIFEDIPINE [Concomitant]
     Active Substance: NIFEDIPINE
  15. Metoperolol Succinate [Concomitant]
  16. ONDANSETRON [Concomitant]
     Active Substance: ONDANSETRON
  17. SIMVASTATIN [Concomitant]
     Active Substance: SIMVASTATIN
  18. Vitamin D3 gummies [Concomitant]
  19. VITAMINS [Concomitant]
     Active Substance: VITAMINS

REACTIONS (8)
  - Muscular weakness [None]
  - Vaginal haemorrhage [None]
  - Rectal haemorrhage [None]
  - Diarrhoea [None]
  - Vomiting [None]
  - Skin lesion [None]
  - Rash [None]
  - Decreased appetite [None]

NARRATIVE: CASE EVENT DATE: 20220503
